FAERS Safety Report 10995663 (Version 4)
Quarter: 2015Q3

REPORT INFORMATION
  Report Type: Report from Study
  Country: CZ (occurrence: CZ)
  Receive Date: 20150407
  Receipt Date: 20150706
  Transmission Date: 20151125
  Serious: Yes (Hospitalization)
  Sender: FDA-Public Use
  Company Number: CZ-GILEAD-2015-0146761

PATIENT
  Age: 45 Year
  Sex: Male

DRUGS (7)
  1. COTRIMOXAZOLE [Concomitant]
     Active Substance: SULFAMETHOXAZOLE\TRIMETHOPRIM
  2. IDELALISIB [Suspect]
     Active Substance: IDELALISIB
     Indication: NON-HODGKIN^S LYMPHOMA UNSPECIFIED HISTOLOGY INDOLENT
     Dosage: 150 MG, UNK
     Route: 048
     Dates: start: 20150311, end: 20150323
  3. PARALEN [Concomitant]
     Active Substance: ACETAMINOPHEN
  4. BENDAMUSTINE [Suspect]
     Active Substance: BENDAMUSTINE
     Indication: NON-HODGKIN^S LYMPHOMA UNSPECIFIED HISTOLOGY INDOLENT
     Dosage: 90 MG/M2, CYCLICAL
     Route: 042
     Dates: start: 20150311, end: 20150312
  5. ZOVIRAX [Concomitant]
     Active Substance: ACYCLOVIR
  6. LIPANTHYL [Concomitant]
     Active Substance: FENOFIBRATE
  7. RITUXIMAB [Suspect]
     Active Substance: RITUXIMAB
     Indication: NON-HODGKIN^S LYMPHOMA UNSPECIFIED HISTOLOGY INDOLENT
     Dosage: 375 MG/M2, CYCLICAL
     Route: 042
     Dates: start: 20150311, end: 20150311

REACTIONS (2)
  - Sinusitis [Recovered/Resolved]
  - Infection [Recovered/Resolved]

NARRATIVE: CASE EVENT DATE: 20150401
